APPROVED DRUG PRODUCT: TIMOLOL MALEATE
Active Ingredient: TIMOLOL MALEATE
Strength: EQ 0.5% BASE
Dosage Form/Route: SOLUTION/DROPS;OPHTHALMIC
Application: A218460 | Product #001 | TE Code: AT1
Applicant: CAPLIN STERILES LTD
Approved: Aug 7, 2024 | RLD: No | RS: No | Type: RX